FAERS Safety Report 7787355-5 (Version None)
Quarter: 2011Q3

REPORT INFORMATION
  Report Type: 
  Country: None (occurrence: None)
  Receive Date: 20110929
  Receipt Date: 20110919
  Transmission Date: 20111222
  Serious: Yes (Other)
  Sender: FDA-Public Use
  Company Number: PHHY2011IL82298

PATIENT
  Sex: Male

DRUGS (3)
  1. GLEEVEC [Suspect]
     Dosage: 300 MG, UNK
     Route: 048
  2. GLEEVEC [Suspect]
     Indication: CHRONIC MYELOID LEUKAEMIA
     Dosage: 100 MG, DAILY
     Route: 048
     Dates: start: 20101026
  3. GLEEVEC [Suspect]
     Dosage: 100-400 MG, DAILY
     Route: 048

REACTIONS (3)
  - BONE PAIN [None]
  - MONONEUROPATHY MULTIPLEX [None]
  - DIARRHOEA [None]
